FAERS Safety Report 8669547 (Version 2)
Quarter: 2012Q4

REPORT INFORMATION
  Report Type: 
  Country: US (occurrence: US)
  Receive Date: 20120718
  Receipt Date: 20121210
  Transmission Date: 20130627
  Serious: Yes (Other)
  Sender: FDA-Public Use
  Company Number: US-PFIZER INC-2012170887

PATIENT
  Age: 46 Year
  Sex: Male
  Weight: 68.5 kg

DRUGS (3)
  1. CHANTIX [Suspect]
     Indication: SMOKING CESSATION THERAPY
     Dosage: 0.5 mg, daily
     Dates: start: 20120611, end: 201206
  2. CHANTIX [Suspect]
     Dosage: 1 mg, 2x/day
     Dates: start: 201206, end: 20120701
  3. CREON [Concomitant]
     Indication: PANCREATIC DISORDER
     Dosage: 24000cc, 6 tablets daily

REACTIONS (4)
  - Dyspnoea [Not Recovered/Not Resolved]
  - Chest pain [Not Recovered/Not Resolved]
  - Pain in extremity [Not Recovered/Not Resolved]
  - Musculoskeletal stiffness [Not Recovered/Not Resolved]
